FAERS Safety Report 6316096-6 (Version None)
Quarter: 2009Q3

REPORT INFORMATION
  Report Type: 
  Country: None (occurrence: None)
  Receive Date: 20090820
  Receipt Date: 20090812
  Transmission Date: 20100115
  Serious: Yes (Hospitalization)
  Sender: FDA-Public Use
  Company Number: PHHY2009FR33816

PATIENT
  Age: 67 Year
  Sex: Female

DRUGS (2)
  1. TEGRETOL [Suspect]
     Indication: EPILEPSY
     Dosage: UNK
  2. SECTRAL [Interacting]
     Dosage: 200 MG

REACTIONS (4)
  - BLOOD PRESSURE SYSTOLIC DECREASED [None]
  - DISTURBANCE IN ATTENTION [None]
  - DRUG INTERACTION [None]
  - NODAL ARRHYTHMIA [None]
